FAERS Safety Report 4783163-8 (Version None)
Quarter: 2005Q3

REPORT INFORMATION
  Report Type: 
  Country: None (occurrence: None)
  Receive Date: 20050929
  Receipt Date: 20050926
  Transmission Date: 20060218
  Serious: Yes (Hospitalization)
  Sender: FDA-Public Use
  Company Number: US-GLAXOSMITHKLINE-A0575909A

PATIENT
  Age: 47 Year
  Sex: Male

DRUGS (7)
  1. AVANDIA [Suspect]
     Dosage: 4MG PER DAY
     Route: 048
  2. COREG [Concomitant]
  3. ZOCOR [Concomitant]
  4. K-DUR 10 [Concomitant]
  5. ALLOPURINOL [Concomitant]
  6. BENICAR [Concomitant]
  7. NORVASC [Concomitant]

REACTIONS (4)
  - CARDIAC FAILURE CONGESTIVE [None]
  - OEDEMA [None]
  - RENAL ARTERY OCCLUSION [None]
  - RENAL IMPAIRMENT [None]
